FAERS Safety Report 6011215-3 (Version None)
Quarter: 2008Q4

REPORT INFORMATION
  Report Type: 
  Country: None (occurrence: None)
  Receive Date: 20081217
  Receipt Date: 20081217
  Transmission Date: 20090506
  Serious: Yes (Life-Threatening, Other)
  Sender: FDA-Public Use
  Company Number: None

PATIENT
  Age: 42 Year
  Sex: Female
  Weight: 73.4827 kg

DRUGS (6)
  1. ENBREL [Suspect]
     Indication: PSORIASIS
     Dosage: 25 MG 2X WEEKLY SQ
     Route: 058
     Dates: start: 20080115, end: 20080625
  2. ENBREL [Suspect]
     Indication: PSORIATIC ARTHROPATHY
     Dosage: 25 MG 2X WEEKLY SQ
     Route: 058
     Dates: start: 20080115, end: 20080625
  3. LISINOPRIL [Concomitant]
  4. CARTIA XT [Concomitant]
  5. XT [Concomitant]
  6. AMBIEN [Concomitant]

REACTIONS (1)
  - B-CELL LYMPHOMA [None]
